FAERS Safety Report 20506287 (Version 5)
Quarter: 2022Q4

REPORT INFORMATION
  Report Type: Report from Study
  Country: US (occurrence: US)
  Receive Date: 20220223
  Receipt Date: 20221208
  Transmission Date: 20230113
  Serious: Yes (Other)
  Sender: FDA-Public Use
  Company Number: US-BIOVITRUM-2022US02508

PATIENT
  Age: 63 Year
  Sex: Male

DRUGS (3)
  1. KINERET [Suspect]
     Active Substance: ANAKINRA
     Indication: Still^s disease
     Dates: start: 20190423
  2. KINERET [Suspect]
     Active Substance: ANAKINRA
     Dates: start: 20190419
  3. KINERET [Suspect]
     Active Substance: ANAKINRA
     Dates: start: 20190419

REACTIONS (13)
  - Haematochezia [Unknown]
  - Still^s disease [Unknown]
  - Condition aggravated [Unknown]
  - COVID-19 [Unknown]
  - Osteoarthritis [Unknown]
  - C-reactive protein increased [Unknown]
  - Gastrointestinal disorder [Unknown]
  - Blood uric acid increased [Unknown]
  - Lipase increased [Unknown]
  - Pain [Unknown]
  - Injection site discolouration [Unknown]
  - Product dose omission issue [Unknown]
  - Off label use [Unknown]

NARRATIVE: CASE EVENT DATE: 20190419
